FAERS Safety Report 4562276-X (Version None)
Quarter: 2005Q1

REPORT INFORMATION
  Report Type: 
  Country: None (occurrence: None)
  Receive Date: 20050127
  Receipt Date: 20050121
  Transmission Date: 20050727
  Serious: Yes (Other)
  Sender: FDA-Public Use
  Company Number: 200510519US

PATIENT
  Sex: 0

DRUGS (2)
  1. ARAVA [Suspect]
     Dosage: DOSE: NOT PROVIDED
  2. METFORMIN HCL [Concomitant]
     Dosage: DOSE: NOT PROVIDED

REACTIONS (2)
  - HAEMODYNAMIC INSTABILITY [None]
  - LACTIC ACIDOSIS [None]
